FAERS Safety Report 12275876 (Version 2)
Quarter: 2016Q4

REPORT INFORMATION
  Report Type: Spontaneous
  Country: US (occurrence: US)
  Receive Date: 20160418
  Receipt Date: 20161115
  Transmission Date: 20170207
  Serious: Yes (Hospitalization)
  Sender: FDA-Public Use
  Company Number: US-BEH-2016061182

PATIENT
  Sex: Male
  Weight: 70.31 kg

DRUGS (25)
  1. FERROUS SULFATE. [Concomitant]
     Active Substance: FERROUS SULFATE
  2. METOPROLOL. [Concomitant]
     Active Substance: METOPROLOL
  3. ACYCLOVIR. [Concomitant]
     Active Substance: ACYCLOVIR
  4. TACROLIMUS. [Concomitant]
     Active Substance: TACROLIMUS
  5. HIZENTRA [Suspect]
     Active Substance: HUMAN IMMUNOGLOBULIN G
     Indication: IMMUNODEFICIENCY COMMON VARIABLE
     Dosage: 8 G, QW
     Route: 058
     Dates: start: 20150917
  6. HIZENTRA [Suspect]
     Active Substance: HUMAN IMMUNOGLOBULIN G
     Dosage: 10 UNK, UNK
     Route: 058
  7. CELLCEPT [Concomitant]
     Active Substance: MYCOPHENOLATE MOFETIL\MYCOPHENOLATE MOFETIL HYDROCHLORIDE
  8. ZITHROMAX [Concomitant]
     Active Substance: AZITHROMYCIN DIHYDRATE
  9. CALCIUM + D3 [Concomitant]
     Active Substance: CALCIUM\CHOLECALCIFEROL
  10. BACTRIM DS [Concomitant]
     Active Substance: SULFAMETHOXAZOLE\TRIMETHOPRIM
  11. PRAVASTATIN. [Concomitant]
     Active Substance: PRAVASTATIN
  12. EPIPEN [Concomitant]
     Active Substance: EPINEPHRINE
  13. LASIX [Concomitant]
     Active Substance: FUROSEMIDE
  14. VITAMIN C [Concomitant]
     Active Substance: ASCORBIC ACID
  15. WARFARIN [Concomitant]
     Active Substance: WARFARIN
  16. PROTONIX [Concomitant]
     Active Substance: PANTOPRAZOLE SODIUM
  17. COMBIVENT [Concomitant]
     Active Substance: ALBUTEROL SULFATE\IPRATROPIUM BROMIDE
  18. GABAPENTIN. [Concomitant]
     Active Substance: GABAPENTIN
  19. EFFEXOR XR [Concomitant]
     Active Substance: VENLAFAXINE HYDROCHLORIDE
  20. ALENDRONATE [Concomitant]
     Active Substance: ALENDRONATE SODIUM
  21. RISPERDAL [Concomitant]
     Active Substance: RISPERIDONE
  22. GLUCOSAMINE [Concomitant]
     Active Substance: GLUCOSAMINE
  23. MULTIVITAMINS [Concomitant]
     Active Substance: VITAMINS
  24. VFEND [Concomitant]
     Active Substance: VORICONAZOLE
  25. PREDNISONE. [Concomitant]
     Active Substance: PREDNISONE

REACTIONS (3)
  - Lung neoplasm malignant [Unknown]
  - Pneumonia viral [Unknown]
  - Lung transplant [Unknown]
